FAERS Safety Report 8811335 (Version 2)
Quarter: 2013Q2

REPORT INFORMATION
  Report Type: Spontaneous
  Country: FR (occurrence: FR)
  Receive Date: 20120927
  Receipt Date: 20130417
  Transmission Date: 20140414
  Serious: Yes (Hospitalization, Other)
  Sender: FDA-Public Use
  Company Number: FR-ELI_LILLY_AND_COMPANY-FR201209003384

PATIENT
  Age: 41 Year
  Sex: Female

DRUGS (6)
  1. ZYPREXA [Suspect]
     Indication: BIPOLAR DISORDER
     Dosage: 10 MG, QD
     Route: 048
     Dates: start: 20120705, end: 20120713
  2. ZYPREXA [Suspect]
     Dosage: 20 MG, QD
     Route: 048
     Dates: start: 20120713, end: 20120822
  3. LAMICTAL [Concomitant]
     Indication: BIPOLAR DISORDER
     Dosage: 25 MG, QD
     Dates: start: 20120723, end: 20120730
  4. LAMICTAL [Concomitant]
     Dosage: 50 MG, QD
     Dates: start: 20120730, end: 20120816
  5. TERALITHE [Concomitant]
     Indication: BIPOLAR DISORDER
     Dosage: 400 MG, UNK
  6. SELOZOK [Concomitant]
     Indication: HYPERTENSION
     Dosage: 23.75 MG, QD
     Dates: start: 20120626

REACTIONS (1)
  - Drug reaction with eosinophilia and systemic symptoms [Recovered/Resolved]
